FAERS Safety Report 22356571 (Version 1)
Quarter: 2023Q2

REPORT INFORMATION
  Report Type: Spontaneous
  Country: CZ (occurrence: CZ)
  Receive Date: 20230523
  Receipt Date: 20230523
  Transmission Date: 20230722
  Serious: Yes (Hospitalization, Other)
  Sender: FDA-Public Use
  Company Number: None

PATIENT
  Age: 70 Year
  Sex: Female
  Weight: 77 kg

DRUGS (3)
  1. YERVOY [Suspect]
     Active Substance: IPILIMUMAB
     Indication: Malignant melanoma
     Dosage: ADMINISTERED IN COMBINATION WITH OPDIVO 1MG/KG AND 3 WEEKS - A TOTAL OF 4 INFUSIONS
     Route: 042
     Dates: start: 20201023, end: 20210201
  2. OPDIVO [Suspect]
     Active Substance: NIVOLUMAB
     Indication: Malignant melanoma
     Dosage: WHEN COMBINED WITH YERVYO, 4 INFUSIONS OF OPDIVO AT A DOSE OF 1MG/KG AND 3 WEEKS WERE ADMINISTERED,
     Route: 042
     Dates: start: 20201023, end: 20221101
  3. LINAGLIPTIN [Concomitant]
     Active Substance: LINAGLIPTIN
     Indication: Type 2 diabetes mellitus
     Route: 048
     Dates: start: 20210301, end: 20230428

REACTIONS (5)
  - Oral mucosa erosion [Recovering/Resolving]
  - Erythema [Recovering/Resolving]
  - Tongue erosion [Recovering/Resolving]
  - Nail avulsion [Recovering/Resolving]
  - Blister [Recovering/Resolving]

NARRATIVE: CASE EVENT DATE: 20230301
